FAERS Safety Report 20788372 (Version 1)
Quarter: 2022Q2

REPORT INFORMATION
  Report Type: Spontaneous
  Country: CN (occurrence: CN)
  Receive Date: 20220505
  Receipt Date: 20220505
  Transmission Date: 20220720
  Serious: Yes (Death, Hospitalization)
  Sender: FDA-Public Use
  Company Number: CN-STRIDES ARCOLAB LIMITED-2022SP004954

PATIENT
  Age: 56 Year
  Sex: Male

DRUGS (30)
  1. ETOPOSIDE [Suspect]
     Active Substance: ETOPOSIDE
     Indication: Diffuse large B-cell lymphoma
     Dosage: UNK, CYCLICAL, (RECEIVED FOUR CYCLES OF R-DAEPOCH REGIMEN AND AS A PART OF BEAC CONDITIONING REGIMEN
     Route: 065
  2. ETOPOSIDE [Suspect]
     Active Substance: ETOPOSIDE
     Indication: Diffuse large B-cell lymphoma
  3. ETOPOSIDE [Suspect]
     Active Substance: ETOPOSIDE
     Indication: Triple hit lymphoma
  4. DOXORUBICIN [Suspect]
     Active Substance: DOXORUBICIN
     Indication: Diffuse large B-cell lymphoma
     Dosage: UNK, CYCLICAL (RECEIVED FOUR CYCLES OF R-DAEPOCH REGIMEN)
     Route: 065
  5. DOXORUBICIN [Suspect]
     Active Substance: DOXORUBICIN
     Indication: Diffuse large B-cell lymphoma
  6. DOXORUBICIN [Suspect]
     Active Substance: DOXORUBICIN
     Indication: Triple hit lymphoma
  7. PREDNISOLONE [Suspect]
     Active Substance: PREDNISOLONE
     Indication: Diffuse large B-cell lymphoma
     Dosage: UNK, CYCLICAL (RECEIVED FOUR CYCLES OF R-DAEPOCH REGIMEN)
     Route: 065
  8. PREDNISOLONE [Suspect]
     Active Substance: PREDNISOLONE
     Indication: Diffuse large B-cell lymphoma
  9. PREDNISOLONE [Suspect]
     Active Substance: PREDNISOLONE
     Indication: Triple hit lymphoma
  10. METHOTREXATE [Suspect]
     Active Substance: METHOTREXATE
     Indication: Diffuse large B-cell lymphoma
     Dosage: UNK, CYCLICAL, (TWO CYCLES OF R-MA REGIMEN)
     Route: 065
  11. METHOTREXATE [Suspect]
     Active Substance: METHOTREXATE
     Indication: Diffuse large B-cell lymphoma
  12. METHOTREXATE [Suspect]
     Active Substance: METHOTREXATE
     Indication: Triple hit lymphoma
  13. BICNU [Suspect]
     Active Substance: CARMUSTINE
     Indication: Diffuse large B-cell lymphoma
     Dosage: UNK (BEAC CONDITIONING REGIMEN)
     Route: 065
  14. BICNU [Suspect]
     Active Substance: CARMUSTINE
     Indication: Diffuse large B-cell lymphoma
  15. BICNU [Suspect]
     Active Substance: CARMUSTINE
     Indication: Triple hit lymphoma
  16. RITUXIMAB [Suspect]
     Active Substance: RITUXIMAB
     Indication: Diffuse large B-cell lymphoma
     Dosage: UNK, CYCLICAL (RECEIVED FOUR CYCLES OF R-DAEPOCH REGIMEN)
     Route: 065
  17. RITUXIMAB [Suspect]
     Active Substance: RITUXIMAB
     Indication: Diffuse large B-cell lymphoma
     Dosage: 500 MILLIGRAM/SQ. METER (HIGH-DOSE RITUXIMAB ALONG WITH BEAC REGIMEN)
     Route: 065
  18. RITUXIMAB [Suspect]
     Active Substance: RITUXIMAB
     Indication: Triple hit lymphoma
  19. VINCRISTINE [Suspect]
     Active Substance: VINCRISTINE
     Indication: Diffuse large B-cell lymphoma
     Dosage: UNK, CYCLICAL (RECEIVED FOUR CYCLES OF R-DAEPOCH REGIMEN)
     Route: 065
  20. VINCRISTINE [Suspect]
     Active Substance: VINCRISTINE
     Indication: Diffuse large B-cell lymphoma
  21. VINCRISTINE [Suspect]
     Active Substance: VINCRISTINE
     Indication: Triple hit lymphoma
  22. CYCLOPHOSPHAMIDE [Suspect]
     Active Substance: CYCLOPHOSPHAMIDE
     Indication: Diffuse large B-cell lymphoma
     Dosage: UNK, CYCLICAL (RECEIVED FOUR CYCLES OF R-DAEPOCH REGIMEN AND AS A PART OF BEAC CONDITIONING REGIMEN)
     Route: 065
  23. CYCLOPHOSPHAMIDE [Suspect]
     Active Substance: CYCLOPHOSPHAMIDE
     Indication: Diffuse large B-cell lymphoma
  24. CYCLOPHOSPHAMIDE [Suspect]
     Active Substance: CYCLOPHOSPHAMIDE
     Indication: Triple hit lymphoma
  25. CYTARABINE [Suspect]
     Active Substance: CYTARABINE
     Indication: Diffuse large B-cell lymphoma
     Dosage: UNK, CYCLICAL, (TWO CYCLES OF R-MA REGIMEN AND AS A PART OF BEAC CONDITIONING REGIMEN)
     Route: 065
  26. CYTARABINE [Suspect]
     Active Substance: CYTARABINE
     Indication: Diffuse large B-cell lymphoma
  27. CYTARABINE [Suspect]
     Active Substance: CYTARABINE
     Indication: Triple hit lymphoma
  28. TUCIDINOSTAT [Suspect]
     Active Substance: TUCIDINOSTAT
     Indication: Diffuse large B-cell lymphoma
     Dosage: 20 MILLIGRAM (0.5 WEEK) (TWO CYCLES OF R-MA REGIMEN)
     Route: 065
  29. TUCIDINOSTAT [Suspect]
     Active Substance: TUCIDINOSTAT
     Indication: Diffuse large B-cell lymphoma
     Dosage: UNK (ALONG WITH BEAC CONDITIONING REGIMEN)
     Route: 065
  30. TUCIDINOSTAT [Suspect]
     Active Substance: TUCIDINOSTAT
     Indication: Triple hit lymphoma

REACTIONS (3)
  - Drug ineffective [Fatal]
  - Therapy partial responder [Fatal]
  - Drug ineffective for unapproved indication [Fatal]
